FAERS Safety Report 8091127-4 (Version None)
Quarter: 2012Q1

REPORT INFORMATION
  Report Type: 
  Country: None (occurrence: None)
  Receive Date: 20120129
  Receipt Date: 20111021
  Transmission Date: 20120608
  Serious: No
  Sender: FDA-Public Use
  Company Number: US-ABBOTT-11P-163-0867149-00

PATIENT
  Age: 33 Year
  Sex: Female

DRUGS (3)
  1. LIALDA [Concomitant]
     Indication: CROHN'S DISEASE
  2. HUMIRA [Suspect]
     Indication: CROHN'S DISEASE
     Dates: start: 20110923
  3. PREDNISONE TAB [Concomitant]
     Indication: INFLAMMATION
     Dosage: TAPERING DOWN

REACTIONS (1)
  - INJECTION SITE PAIN [None]
